FAERS Safety Report 7488704-8 (Version None)
Quarter: 2011Q2

REPORT INFORMATION
  Report Type: 
  Country: None (occurrence: None)
  Receive Date: 20110518
  Receipt Date: 20110516
  Transmission Date: 20111010
  Serious: Yes (Death, Life-Threatening)
  Sender: FDA-Public Use
  Company Number: B0719893A

PATIENT
  Sex: Male
  Weight: 82 kg

DRUGS (4)
  1. THALIDOMIDE [Suspect]
     Indication: MULTIPLE MYELOMA
     Dosage: 100MG PER DAY
     Route: 048
     Dates: start: 20090204, end: 20090916
  2. VELCADE [Concomitant]
     Indication: MULTIPLE MYELOMA
     Dates: start: 20100908, end: 20101124
  3. MELPHALAN HYDROCHLORIDE [Suspect]
     Indication: MULTIPLE MYELOMA
     Route: 065
     Dates: start: 20090204, end: 20090916
  4. PREDNISONE [Suspect]
     Indication: MULTIPLE MYELOMA
     Dosage: 175MG PER DAY
     Dates: start: 20090204, end: 20090916

REACTIONS (2)
  - ACUTE MYELOID LEUKAEMIA [None]
  - NEUTROPENIC SEPSIS [None]
